FAERS Safety Report 20643203 (Version 1)
Quarter: 2022Q1

REPORT INFORMATION
  Report Type: Spontaneous
  Country: US (occurrence: None)
  Receive Date: 20220325
  Receipt Date: 20220325
  Transmission Date: 20220423
  Serious: Yes (Hospitalization, Other)
  Sender: FDA-Public Use
  Company Number: None

PATIENT
  Age: 6 Year
  Sex: Male
  Weight: 20.6 kg

DRUGS (1)
  1. DINUTUXIMAB [Suspect]
     Active Substance: DINUTUXIMAB
     Indication: Neuroblastoma
     Dosage: FREQUENCY : DAILY;?
     Route: 042
     Dates: start: 20211203, end: 20211206

REACTIONS (4)
  - Respiratory failure [None]
  - Myelitis transverse [None]
  - Muscular weakness [None]
  - Mental status changes [None]

NARRATIVE: CASE EVENT DATE: 20211206
